FAERS Safety Report 21279892 (Version 1)
Quarter: 2022Q3

REPORT INFORMATION
  Report Type: Spontaneous
  Country: US (occurrence: None)
  Receive Date: 20220831
  Receipt Date: 20220831
  Transmission Date: 20221027
  Serious: Yes (Other)
  Sender: FDA-Public Use
  Company Number: None

PATIENT
  Age: 51 Year
  Sex: Female
  Weight: 61.69 kg

DRUGS (8)
  1. VILAZODONE [Suspect]
     Active Substance: VILAZODONE
     Indication: Major depression
     Dosage: FREQUENCY : DAILY;?
     Route: 048
     Dates: start: 20220718, end: 20220720
  2. VILAZODONE [Suspect]
     Active Substance: VILAZODONE
     Indication: Anxiety
  3. OMEPRAZOLE [Concomitant]
     Active Substance: OMEPRAZOLE
  4. AMLODIPINE [Concomitant]
     Active Substance: AMLODIPINE BESYLATE
  5. ROPINIROLE [Concomitant]
     Active Substance: ROPINIROLE
  6. ALPRAZOLE [Concomitant]
  7. ADDERALL XR [Concomitant]
     Active Substance: AMPHETAMINE ASPARTATE\AMPHETAMINE SULFATE\DEXTROAMPHETAMINE SACCHARATE\DEXTROAMPHETAMINE SULFATE
  8. MIRTAZAPINE HS [Concomitant]

REACTIONS (5)
  - Product substitution issue [None]
  - Pruritus [None]
  - Formication [None]
  - Irritability [None]
  - Emotional disorder [None]

NARRATIVE: CASE EVENT DATE: 20220718
